FAERS Safety Report 21455258 (Version 2)
Quarter: 2023Q1

REPORT INFORMATION
  Report Type: Spontaneous
  Country: JP (occurrence: JP)
  Receive Date: 20221014
  Receipt Date: 20230222
  Transmission Date: 20230418
  Serious: Yes (Death)
  Sender: FDA-Public Use
  Company Number: JP-Clinigen Group PLC/ Clinigen Healthcare Ltd-JP-CLGN-22-00449

PATIENT
  Age: 66 Year
  Sex: Female

DRUGS (9)
  1. FOSCAVIR [Suspect]
     Active Substance: FOSCARNET SODIUM
     Indication: Ophthalmic herpes simplex
     Route: 042
  2. FOSCAVIR [Suspect]
     Active Substance: FOSCARNET SODIUM
     Indication: Herpes simplex
  3. FOSCAVIR [Suspect]
     Active Substance: FOSCARNET SODIUM
     Indication: Human herpesvirus 6 infection
  4. FOSCAVIR [Suspect]
     Active Substance: FOSCARNET SODIUM
     Indication: Human herpesvirus 7 infection
  5. ACYCLOVIR [Concomitant]
     Active Substance: ACYCLOVIR
     Indication: Infection prophylaxis
     Route: 048
  6. ACYCLOVIR [Concomitant]
     Active Substance: ACYCLOVIR
     Indication: Ophthalmic herpes simplex
  7. ACYCLOVIR [Concomitant]
     Active Substance: ACYCLOVIR
     Indication: Herpes simplex
  8. VALACYCLOVIR [Concomitant]
     Active Substance: VALACYCLOVIR HYDROCHLORIDE
     Indication: Ophthalmic herpes simplex
     Route: 048
  9. VALACYCLOVIR [Concomitant]
     Active Substance: VALACYCLOVIR HYDROCHLORIDE
     Indication: Herpes simplex

REACTIONS (3)
  - General physical health deterioration [Fatal]
  - Drug resistance [Unknown]
  - Off label use [Unknown]
